FAERS Safety Report 14283846 (Version 1)
Quarter: 2017Q4

REPORT INFORMATION
  Report Type: Spontaneous
  Country: US (occurrence: US)
  Receive Date: 20171213
  Receipt Date: 20171213
  Transmission Date: 20180321
  Serious: Yes (Life-Threatening, Hospitalization)
  Sender: FDA-Public Use
  Company Number: None

PATIENT
  Age: 68 Year
  Sex: Male

DRUGS (1)
  1. ENTECAVIR. [Suspect]
     Active Substance: ENTECAVIR
     Indication: HEPATITIS B
     Route: 048
     Dates: start: 20171018, end: 20171120

REACTIONS (4)
  - Alcohol use [None]
  - Acute hepatic failure [None]
  - Treatment noncompliance [None]
  - Hospice care [None]

NARRATIVE: CASE EVENT DATE: 20171212
